FAERS Safety Report 5912161-3 (Version None)
Quarter: 2008Q4

REPORT INFORMATION
  Report Type: 
  Country: None (occurrence: None)
  Receive Date: 20081003
  Receipt Date: 20081003
  Transmission Date: 20090506
  Serious: Yes (Other)
  Sender: FDA-Public Use
  Company Number: None

PATIENT
  Age: 1 Year
  Sex: Male
  Weight: 9.9791 kg

DRUGS (2)
  1. INFANT MOTRIN 50MG PER DROPPER [Suspect]
     Indication: PYREXIA
     Dosage: 200MG Q6HRS PO
     Route: 048
     Dates: start: 20080929, end: 20080930
  2. INFANT MOTRIN 50MG PER DROPPER [Suspect]
     Indication: ROSEOLA
     Dosage: 200MG Q6HRS PO
     Route: 048
     Dates: start: 20080929, end: 20080930

REACTIONS (2)
  - INCORRECT DOSE ADMINISTERED [None]
  - ROSEOLA [None]
